FAERS Safety Report 17884211 (Version 1)
Quarter: 2020Q2

REPORT INFORMATION
  Report Type: Report from Study
  Country: MX (occurrence: MX)
  Receive Date: 20200611
  Receipt Date: 20200611
  Transmission Date: 20200714
  Serious: Yes (Other)
  Sender: FDA-Public Use
  Company Number: NVSC2020MX162615

PATIENT
  Age: 58 Year
  Sex: Female
  Weight: 89 kg

DRUGS (3)
  1. EXFORGE [Suspect]
     Active Substance: AMLODIPINE BESYLATE\VALSARTAN
     Dosage: 2 DF (AMLODIPINE 5 MG, VALSARTAN 160 MG))
     Route: 048
  2. EXFORGE [Suspect]
     Active Substance: AMLODIPINE BESYLATE\VALSARTAN
     Indication: HYPERTENSION
     Dosage: 1 DF, QD (AMLODIPINE 5 MG, VALSARTAN 160 MG) (4 YEARS AGO)
     Route: 048
  3. GALVUS MET [Suspect]
     Active Substance: METFORMIN HYDROCHLORIDE\VILDAGLIPTIN
     Indication: DIABETES MELLITUS
     Dosage: 1 DF, Q12H (METFORMIN 850 MG, VILDAGLIPTIN 50 MG) (10 YEARS AGO)
     Route: 048

REACTIONS (4)
  - Incorrect dose administered [Unknown]
  - Blood pressure increased [Recovering/Resolving]
  - Facial paralysis [Recovering/Resolving]
  - Product prescribing error [Unknown]

NARRATIVE: CASE EVENT DATE: 20200501
